FAERS Safety Report 6657360-0 (Version None)
Quarter: 2010Q1

REPORT INFORMATION
  Report Type: 
  Country: None (occurrence: None)
  Receive Date: 20100330
  Receipt Date: 20100318
  Transmission Date: 20100710
  Serious: Yes (Death)
  Sender: FDA-Public Use
  Company Number: US-MYLANLABS-2010S1002270

PATIENT
  Age: 22 Year
  Sex: Male
  Weight: 76.66 kg

DRUGS (4)
  1. FENTANYL CITRATE [Suspect]
     Route: 062
  2. METHADONE [Suspect]
  3. COCAINE [Suspect]
  4. DIAZEPAM [Suspect]

REACTIONS (3)
  - ACCIDENTAL OVERDOSE [None]
  - DRUG TOXICITY [None]
  - INTENTIONAL DRUG MISUSE [None]
